FAERS Safety Report 5496544-4 (Version None)
Quarter: 2007Q4

REPORT INFORMATION
  Report Type: 
  Country: None (occurrence: None)
  Receive Date: 20071025
  Receipt Date: 20070712
  Transmission Date: 20080405
  Serious: No
  Sender: FDA-Public Use
  Company Number: A0656492A

PATIENT
  Age: 73 Year
  Sex: Female
  Weight: 137.2 kg

DRUGS (15)
  1. ADVAIR DISKUS 100/50 [Suspect]
     Indication: CHRONIC OBSTRUCTIVE PULMONARY DISEASE
     Dosage: 2PUFF PER DAY
     Route: 055
  2. ALBUTEROL [Suspect]
     Indication: DRUG USE FOR UNKNOWN INDICATION
     Dosage: 2PUFF FOUR TIMES PER DAY
  3. MACRODANTIN [Concomitant]
     Dosage: 50MG PER DAY
  4. HYDROCHLOROTHIAZIDE [Concomitant]
     Dosage: 25MG PER DAY
  5. ZOLOFT [Concomitant]
     Dosage: 100MG PER DAY
  6. ANTIVERT [Concomitant]
     Dosage: 25MG TWICE PER DAY
     Route: 048
  7. PREVACID [Concomitant]
     Dosage: 30MG PER DAY
     Route: 048
  8. ALLEGRA [Concomitant]
     Dosage: 60MG TWICE PER DAY
     Route: 048
  9. COZAAR [Concomitant]
     Dosage: 50MG PER DAY
  10. CELEBREX [Concomitant]
     Dosage: 100MG PER DAY
  11. POTASSIUM CHLORIDE [Concomitant]
     Dosage: 20MEQ TWICE PER DAY
  12. MAG-OX [Concomitant]
     Dosage: 400MG PER DAY
  13. LIDOCAINE [Concomitant]
  14. LIPITOR [Concomitant]
     Dosage: 10MG PER DAY
     Route: 048
  15. NASALCROM [Concomitant]

REACTIONS (4)
  - DYSPHONIA [None]
  - PHARYNGEAL ERYTHEMA [None]
  - RHINITIS [None]
  - THROAT IRRITATION [None]
